FAERS Safety Report 6846265-8 (Version None)
Quarter: 2010Q3

REPORT INFORMATION
  Report Type: 
  Country: None (occurrence: None)
  Receive Date: 20100715
  Receipt Date: 20070917
  Transmission Date: 20110219
  Serious: No
  Sender: FDA-Public Use
  Company Number: US-PFIZER INC-2007078016

PATIENT
  Sex: Male
  Weight: 81.6 kg

DRUGS (6)
  1. CHANTIX [Suspect]
     Indication: SMOKING CESSATION THERAPY
     Dates: start: 20070101
  2. LOPRESSOR [Concomitant]
  3. ZOLOFT [Concomitant]
  4. ACETYLSALICYLIC ACID [Concomitant]
  5. MULTI-VITAMINS [Concomitant]
  6. TAMSULOSIN HYDROCHLORIDE [Concomitant]

REACTIONS (2)
  - ABDOMINAL PAIN UPPER [None]
  - HEADACHE [None]
